FAERS Safety Report 5355128-9 (Version None)
Quarter: 2007Q2

REPORT INFORMATION
  Report Type: 
  Country: None (occurrence: None)
  Receive Date: 20070521
  Receipt Date: 20070110
  Transmission Date: 20071010
  Serious: Yes (Hospitalization)
  Sender: FDA-Public Use
  Company Number: 0701-002

PATIENT
  Age: 70 Year
  Sex: Male
  Weight: 92.5338 kg

DRUGS (9)
  1. DUONEB [Suspect]
     Indication: DYSPNOEA
     Dosage: QID-NEBULIZER
     Dates: start: 20061228, end: 20070101
  2. DUONEB [Suspect]
     Indication: NASOPHARYNGITIS
     Dosage: QID-NEBULIZER
     Dates: start: 20061228, end: 20070101
  3. AMANOLIDE [Concomitant]
  4. BIAXIN [Concomitant]
  5. GLUCOVANCE [Concomitant]
  6. GLYBURIDE [Concomitant]
  7. METFORMIN HCL [Concomitant]
  8. JANUVIA [Concomitant]
  9. XANAX [Concomitant]

REACTIONS (1)
  - PNEUMONIA [None]
